FAERS Safety Report 7010862-X (Version None)
Quarter: 2010Q3

REPORT INFORMATION
  Report Type: 
  Country: None (occurrence: None)
  Receive Date: 20100923
  Receipt Date: 20100923
  Transmission Date: 20110219
  Serious: Yes (Life-Threatening)
  Sender: FDA-Public Use
  Company Number: None

PATIENT
  Sex: Male
  Weight: 71.6683 kg

DRUGS (1)
  1. AMIODARONE HCL [Suspect]
     Indication: HEART RATE IRREGULAR
     Dates: start: 19980304, end: 20100414

REACTIONS (6)
  - CHRONIC OBSTRUCTIVE PULMONARY DISEASE [None]
  - DRUG TOXICITY [None]
  - DYSPNOEA [None]
  - HEART RATE DECREASED [None]
  - PNEUMONIA VIRAL [None]
  - PULMONARY FIBROSIS [None]
